FAERS Safety Report 19056772 (Version 2)
Quarter: 2021Q2

REPORT INFORMATION
  Report Type: Spontaneous
  Country: NL (occurrence: NL)
  Receive Date: 20210325
  Receipt Date: 20210405
  Transmission Date: 20210717
  Serious: Yes (Death, Life-Threatening, Hospitalization)
  Sender: FDA-Public Use
  Company Number: NL-ACCORD-220387

PATIENT
  Age: 72 Year
  Sex: Male

DRUGS (13)
  1. HYDROCHLOROTHIAZIDE. [Concomitant]
     Active Substance: HYDROCHLOROTHIAZIDE
  2. NORTRILEN [Concomitant]
     Active Substance: NORTRIPTYLINE
     Dosage: 10 MG
  3. COVID?19 VACCINE NOS. [Suspect]
     Active Substance: COVID-19 VACCINE NOS
     Indication: COVID-19 IMMUNISATION
     Dosage: COVID?19 VACCINE PFIZER?SOLUTION FOR INJECTION 0.3ML
     Dates: start: 20210130
  4. PARACETAMOL [Concomitant]
     Active Substance: ACETAMINOPHEN
  5. APIXABAN [Suspect]
     Active Substance: APIXABAN
     Indication: ATRIAL FLUTTER
     Dates: start: 2019
  6. ENALAPRIL [Concomitant]
     Active Substance: ENALAPRIL
     Dosage: 2.5 MG / BRAND NAME NOT SPECIFIED
  7. MOVICOLON [Concomitant]
     Active Substance: POLYETHYLENE GLYCOL 3350\POTASSIUM CHLORIDE\SODIUM BICARBONATE\SODIUM CHLORIDE
     Dosage: SALTS(MOVIC / MOLAX / LAXT / GEN) /
  8. SIMVASTATIN. [Concomitant]
     Active Substance: SIMVASTATIN
     Dosage: 10 MG / BRAND NAME NOT SPECIFIED
  9. VOLTAREN [Concomitant]
     Active Substance: DICLOFENAC SODIUM
  10. METFORMIN [Concomitant]
     Active Substance: METFORMIN HYDROCHLORIDE
     Dosage: 250 MG / BRAND NAME NOT SPECIFIED
  11. METOPROLOL. [Concomitant]
     Active Substance: METOPROLOL
  12. DIVISUN [Concomitant]
     Active Substance: CHOLECALCIFEROL
     Dosage: 800 IU
  13. LAMOTRIGINE. [Concomitant]
     Active Substance: LAMOTRIGINE
     Dosage: 5 MG / BRAND NAME NOT SPECIFIED

REACTIONS (2)
  - Cerebral haemorrhage [Fatal]
  - Hemiparesis [Fatal]

NARRATIVE: CASE EVENT DATE: 20210202
